FAERS Safety Report 5227876-2 (Version None)
Quarter: 2007Q1

REPORT INFORMATION
  Report Type: 
  Country: None (occurrence: None)
  Receive Date: 20070202
  Receipt Date: 20070123
  Transmission Date: 20070707
  Serious: Yes (Death)
  Sender: FDA-Public Use
  Company Number: PL-PFIZER INC-2007002438

PATIENT
  Sex: Male
  Weight: 76 kg

DRUGS (9)
  1. SU-011,248 [Suspect]
     Indication: METASTATIC RENAL CELL CARCINOMA
     Route: 048
     Dates: start: 20060606, end: 20061220
  2. EFFERALGAN CODEINE [Concomitant]
     Route: 048
  3. RANIGAST [Concomitant]
     Route: 048
     Dates: start: 20060605
  4. SECTRAL [Concomitant]
     Route: 048
     Dates: start: 20060610
  5. BENAZEPRIL HYDROCHLORIDE [Concomitant]
     Route: 048
     Dates: start: 20060617
  6. TERTENSIF [Concomitant]
     Route: 048
     Dates: start: 20060618
  7. ACETAMINOPHEN [Concomitant]
     Route: 048
     Dates: start: 20060604
  8. TRAMADOL HCL [Concomitant]
     Route: 048
     Dates: start: 20060605
  9. FUROSEMIDE [Concomitant]
     Route: 048
     Dates: start: 20060901

REACTIONS (2)
  - DISEASE PROGRESSION [None]
  - METASTATIC RENAL CELL CARCINOMA [None]
